FAERS Safety Report 4337847-6 (Version None)
Quarter: 2004Q1

REPORT INFORMATION
  Report Type: 
  Country: None (occurrence: None)
  Receive Date: 20040326
  Receipt Date: 20030428
  Transmission Date: 20041129
  Serious: Yes (Other)
  Sender: FDA-Public Use
  Company Number: 2003UW11820

PATIENT
  Sex: Female

DRUGS (2)
  1. ZESTRIL [Suspect]
     Dosage: 5 MG PO
     Route: 048
  2. ALESSE [Suspect]

REACTIONS (1)
  - MEDICATION ERROR [None]
